FAERS Safety Report 25609448 (Version 7)
Quarter: 2025Q4

REPORT INFORMATION
  Report Type: Report from Study
  Country: EU (occurrence: EU)
  Receive Date: 20250727
  Receipt Date: 20251117
  Transmission Date: 20260118
  Serious: Yes (Hospitalization)
  Sender: ABBVIE
  Company Number: EU-ABBVIE-6382683

PATIENT
  Age: 70 Year
  Sex: Male

DRUGS (2)
  1. FOSCARBIDOPA\FOSLEVODOPA [Suspect]
     Active Substance: FOSCARBIDOPA\FOSLEVODOPA
     Indication: Parkinson^s disease
     Dosage: LAST ADMIN DATE: 2025
     Route: 058
     Dates: start: 20250120
  2. FOSCARBIDOPA\FOSLEVODOPA [Suspect]
     Active Substance: FOSCARBIDOPA\FOSLEVODOPA
     Dosage: DOSE INCREASED TO 0.44 HIGH SPEED
     Route: 058
     Dates: start: 2025

REACTIONS (7)
  - Urinary tract infection [Recovered/Resolved]
  - Catheter site mass [Unknown]
  - Freezing phenomenon [Not Recovered/Not Resolved]
  - Device issue [Unknown]
  - On and off phenomenon [Unknown]
  - Weight decreased [Unknown]
  - Malabsorption from administration site [Not Recovered/Not Resolved]

NARRATIVE: CASE EVENT DATE: 20250101
